FAERS Safety Report 7330132-X (Version None)
Quarter: 2011Q1

REPORT INFORMATION
  Report Type: 
  Country: None (occurrence: None)
  Receive Date: 20110303
  Receipt Date: 20110218
  Transmission Date: 20110831
  Serious: Yes (Hospitalization, Other)
  Sender: FDA-Public Use
  Company Number: PHEH2008US06031

PATIENT

DRUGS (72)
  1. TAXANES [Concomitant]
  2. ZITHROMAX [Concomitant]
     Dosage: 250 MG
  3. SKELAXIN [Concomitant]
     Dosage: 400 MG / 1-2 Q8HRS PRN
     Route: 048
     Dates: end: 20070118
  4. LORAZEPAM [Concomitant]
     Dosage: 0.5 MG
  5. TRIAMCINOLONE [Concomitant]
     Dosage: 0.1 %
  6. DIFLUCAN [Concomitant]
     Dosage: 100 MG / QD
     Route: 048
     Dates: end: 20090112
  7. CLINDAMYCIN [Concomitant]
     Dosage: 1300 MG / QD
     Route: 048
     Dates: end: 20090112
  8. ALEVE [Concomitant]
  9. TAXOTERE [Concomitant]
  10. PACLITAXEL [Concomitant]
  11. QINOLON [Concomitant]
  12. REGLAN [Concomitant]
  13. NEURONTIN [Concomitant]
  14. ZOVIRAX [Concomitant]
     Dosage: 5%
  15. TRAMADOL HYDROCHLORIDE [Concomitant]
     Dosage: 50 MG
  16. OSCAL 500-D [Concomitant]
  17. BIOTENE [Concomitant]
  18. MAALOX                                  /USA/ [Concomitant]
  19. PAXIL [Concomitant]
  20. DECADRON [Concomitant]
  21. LYRICA [Concomitant]
  22. DURAGESIC-50 [Concomitant]
  23. CARDIZEM [Concomitant]
  24. CIPROFLOXACIN HYDROCHLORIDE [Concomitant]
     Dosage: 500 MG
  25. METOCLOPRAMIDE [Concomitant]
     Dosage: 10 MG
  26. VICODIN [Concomitant]
     Dosage: UNK / TID PRN
  27. BACTRIM DS [Concomitant]
  28. COMPAZINE [Concomitant]
  29. ZOMETA [Suspect]
     Dosage: UNK
     Dates: end: 20060401
  30. DILAUDID [Concomitant]
  31. VALTREX [Concomitant]
  32. PAROXETINE HYDROCHLORIDE [Concomitant]
     Dosage: 20 MG
  33. GABAPENTIN [Concomitant]
     Dosage: 300 MG
  34. CLOTRIMAZOLE [Concomitant]
     Dosage: 10 MG
  35. NYSTATIN [Concomitant]
     Dosage: UNK
  36. FOSAMAX [Concomitant]
     Dosage: 70 MG / Q WEEK
     Route: 048
  37. LODINE [Concomitant]
     Dosage: 400 MG / BID
     Route: 048
  38. FLEXERIL [Concomitant]
     Dosage: 10 MG / TID PRN
     Route: 048
     Dates: end: 20070118
  39. LASIX [Concomitant]
     Dosage: 40 MG / QD
     Route: 048
     Dates: end: 20090112
  40. ABRAXANE [Concomitant]
  41. AVASTIN [Concomitant]
  42. CIPRO [Concomitant]
     Dosage: 500 MG / BID
     Route: 048
     Dates: end: 20090112
  43. ULTRAM [Concomitant]
  44. FAMVIR                                  /NET/ [Concomitant]
     Dosage: 500 MG
  45. DEXAMETHASONE [Concomitant]
     Dosage: 4 MG
  46. ATIVAN [Concomitant]
     Indication: ANXIETY
     Dosage: 0.5 MG / BID PRN
     Dates: end: 20070118
  47. PERIDEX [Concomitant]
  48. SENOKOT                                 /UNK/ [Concomitant]
  49. MEGESTROL ACETATE [Concomitant]
  50. SENOKOT                                 /USA/ [Concomitant]
  51. XELODA [Concomitant]
  52. ROCEPHIN [Concomitant]
     Dosage: 1 GM
     Dates: end: 20090112
  53. DOXYCYCLINE [Concomitant]
     Dosage: 100 MG
  54. LEVAQUIN [Concomitant]
     Dosage: 500 MG
  55. FUROSEMIDE [Concomitant]
     Dosage: 20 MG
  56. HYDROMORPHONE [Concomitant]
     Dosage: 2 MG
  57. ETODOLAC [Concomitant]
     Dosage: 400 MG
  58. PREDNISOLONE [Concomitant]
     Dosage: 15 MG/5ML
  59. CLEOCIN [Concomitant]
  60. AREDIA [Suspect]
  61. CHEMOTHERAPEUTICS NOS [Concomitant]
  62. DILTIAZEM [Concomitant]
     Dosage: UNK
     Dates: end: 20090112
  63. ATENOLOL [Concomitant]
     Dosage: UNK
     Dates: end: 20090112
  64. ARIMIDEX [Concomitant]
  65. PERCOCET [Concomitant]
  66. TORADOL [Concomitant]
  67. CYCLOBENZAPRINE [Concomitant]
     Dosage: 10 MG
  68. CHLORHEXIDINE GLUCONATE [Concomitant]
     Dosage: 0.12%
  69. OXYCODONE HCL AND ACETAMINOPHEN [Concomitant]
     Dosage: 5/325
  70. DULCOLAX [Concomitant]
  71. ZOFRAN [Concomitant]
  72. VANCOMYCIN HCL [Concomitant]

REACTIONS (65)
  - HYPOAESTHESIA [None]
  - GASTROOESOPHAGEAL REFLUX DISEASE [None]
  - SKIN LESION [None]
  - BONE LESION [None]
  - PARAESTHESIA [None]
  - CATHETER SITE HAEMATOMA [None]
  - GENERAL PHYSICAL HEALTH DETERIORATION [None]
  - INFECTION [None]
  - PAIN IN JAW [None]
  - BONE PAIN [None]
  - JAW FRACTURE [None]
  - ONYCHOMYCOSIS [None]
  - LACRIMATION INCREASED [None]
  - DYSURIA [None]
  - BLOOD GLUCOSE DECREASED [None]
  - ASTHENIA [None]
  - EAR PAIN [None]
  - CYSTITIS HAEMORRHAGIC [None]
  - URINARY RETENTION [None]
  - MACULE [None]
  - NECK PAIN [None]
  - BODY TEMPERATURE FLUCTUATION [None]
  - DEFORMITY [None]
  - DYSKINESIA [None]
  - HYPERTENSION [None]
  - OSTEOMYELITIS [None]
  - OTITIS MEDIA [None]
  - SINUS DISORDER [None]
  - OESTROGEN RECEPTOR ASSAY POSITIVE [None]
  - DIARRHOEA [None]
  - CHRONIC SINUSITIS [None]
  - SENSORY DISTURBANCE [None]
  - OSTEONECROSIS OF JAW [None]
  - NEUROGENIC BLADDER [None]
  - NEUROPATHY PERIPHERAL [None]
  - MYALGIA [None]
  - MYOSITIS [None]
  - ORAL CANDIDIASIS [None]
  - ARTHRALGIA [None]
  - UPPER RESPIRATORY TRACT INFECTION [None]
  - BLOOD URINE PRESENT [None]
  - MUSCLE SPASMS [None]
  - AORTIC ARTERIOSCLEROSIS [None]
  - BREAST CANCER RECURRENT [None]
  - MELANOCYTIC NAEVUS [None]
  - EMOTIONAL DISTRESS [None]
  - MENINGITIS [None]
  - BACK PAIN [None]
  - PAIN [None]
  - BRONCHITIS [None]
  - ALOPECIA [None]
  - WHEELCHAIR USER [None]
  - BLOOD UREA NITROGEN/CREATININE RATIO INCREASED [None]
  - ACANTHOMA [None]
  - ABSCESS [None]
  - ANXIETY [None]
  - VAGINAL INFECTION [None]
  - DEPRESSION [None]
  - EXTERNAL EAR DISORDER [None]
  - OSTEOPENIA [None]
  - BLOOD GLUCOSE INCREASED [None]
  - LOCAL SWELLING [None]
  - GAIT DISTURBANCE [None]
  - SQUAMOUS CELL CARCINOMA [None]
  - HAEMORRHOIDS [None]
